FAERS Safety Report 9642523 (Version 1)
Quarter: 2013Q4

REPORT INFORMATION
  Report Type: Spontaneous
  Country: TR (occurrence: TR)
  Receive Date: 20131024
  Receipt Date: 20131024
  Transmission Date: 20140711
  Serious: Yes (Other)
  Sender: FDA-Public Use
  Company Number: TR-MYLANLABS-2013S1023106

PATIENT
  Age: 8 Year
  Sex: Male

DRUGS (2)
  1. PHENYTOIN [Suspect]
     Indication: CONVULSION
     Route: 065
  2. CLONAZEPAM [Suspect]
     Indication: CONVULSION
     Route: 065

REACTIONS (1)
  - Drug reaction with eosinophilia and systemic symptoms [Unknown]
